FAERS Safety Report 10990206 (Version 1)
Quarter: 2015Q1

REPORT INFORMATION
  Report Type: Spontaneous
  Country: US (occurrence: None)
  Receive Date: 20150326
  Receipt Date: 20150326
  Transmission Date: 20150721
  Serious: No
  Sender: FDA-Public Use
  Company Number: 1000074395

PATIENT
  Sex: Male

DRUGS (3)
  1. METAMUCIL (PSYLLIUM) [Concomitant]
  2. SENOKOT [Concomitant]
     Active Substance: SENNOSIDES
  3. LINZESS [Suspect]
     Active Substance: LINACLOTIDE
     Indication: CONSTIPATION
     Dosage: 1 IN 1 D
     Dates: start: 20150202

REACTIONS (2)
  - Drug ineffective [None]
  - Constipation [None]

NARRATIVE: CASE EVENT DATE: 20150202
